FAERS Safety Report 7767894-3 (Version None)
Quarter: 2011Q3

REPORT INFORMATION
  Report Type: 
  Country: None (occurrence: None)
  Receive Date: 20110922
  Receipt Date: 20110218
  Transmission Date: 20111222
  Serious: Yes (Other)
  Sender: FDA-Public Use
  Company Number: US-ASTRAZENECA-2011SE09637

PATIENT
  Age: 38 Year
  Sex: Female
  Weight: 77.1 kg

DRUGS (1)
  1. SEROQUEL [Suspect]
     Indication: BIPOLAR I DISORDER
     Route: 048

REACTIONS (3)
  - DRUG DOSE OMISSION [None]
  - SUICIDE ATTEMPT [None]
  - INSOMNIA [None]
